FAERS Safety Report 17424136 (Version 2)
Quarter: 2020Q1

REPORT INFORMATION
  Report Type: Spontaneous
  Country: US (occurrence: US)
  Receive Date: 20200217
  Receipt Date: 20200325
  Transmission Date: 20200409
  Serious: Yes (Hospitalization, Other)
  Sender: FDA-Public Use
  Company Number: US-GILEAD-2020-0450654

PATIENT
  Age: 48 Year
  Sex: Male

DRUGS (70)
  1. BUPROPION. [Concomitant]
     Active Substance: BUPROPION
  2. LORAZEPAM. [Concomitant]
     Active Substance: LORAZEPAM
  3. ZIAGEN [Concomitant]
     Active Substance: ABACAVIR SULFATE
  4. HYDROCHLOROTHIAZIDE. [Concomitant]
     Active Substance: HYDROCHLOROTHIAZIDE
  5. FAMOTIDINE. [Concomitant]
     Active Substance: FAMOTIDINE
  6. FLUNISOLIDE. [Concomitant]
     Active Substance: FLUNISOLIDE
  7. BACLOFEN. [Concomitant]
     Active Substance: BACLOFEN
  8. INTELENCE [Concomitant]
     Active Substance: ETRAVIRINE
  9. METRONIDAZOLE. [Concomitant]
     Active Substance: METRONIDAZOLE
  10. BEVACIZUMAB. [Concomitant]
     Active Substance: BEVACIZUMAB
  11. CYANOCOBALAMIN. [Concomitant]
     Active Substance: CYANOCOBALAMIN
  12. ELIQUIS [Concomitant]
     Active Substance: APIXABAN
  13. AMITIZA [Concomitant]
     Active Substance: LUBIPROSTONE
  14. VALACYCLOVIR HCL [Concomitant]
     Active Substance: VALACYCLOVIR HYDROCHLORIDE
  15. VIREAD [Suspect]
     Active Substance: TENOFOVIR DISOPROXIL FUMARATE
     Indication: HIV INFECTION
     Dosage: 1 DOSAGE FORM, QD
     Route: 048
     Dates: start: 20070109, end: 200704
  16. VIRACEPT [Concomitant]
     Active Substance: NELFINAVIR MESYLATE
  17. LISINOPRIL. [Concomitant]
     Active Substance: LISINOPRIL
  18. DOXYCYCLINE. [Concomitant]
     Active Substance: DOXYCYCLINE
  19. FLURAZEPAM [Concomitant]
     Active Substance: FLURAZEPAM HYDROCHLORIDE
  20. COMBIVENT [Concomitant]
     Active Substance: ALBUTEROL SULFATE\IPRATROPIUM BROMIDE
  21. MIRTAZAPINE. [Concomitant]
     Active Substance: MIRTAZAPINE
  22. FUROSEMIDE. [Concomitant]
     Active Substance: FUROSEMIDE
  23. VIREAD [Suspect]
     Active Substance: TENOFOVIR DISOPROXIL FUMARATE
     Dosage: 1 DOSAGE FORM, QD
     Route: 048
     Dates: start: 201101, end: 20121024
  24. ACYCLOVIR [ACICLOVIR] [Concomitant]
     Active Substance: ACYCLOVIR
  25. MELOXICAM. [Concomitant]
     Active Substance: MELOXICAM
  26. METHYLPHENIDAT [Concomitant]
     Active Substance: METHYLPHENIDATE
  27. NORTRIPTYLIN [Concomitant]
     Active Substance: NORTRIPTYLINE
  28. TIVICAY [Concomitant]
     Active Substance: DOLUTEGRAVIR SODIUM
  29. SUSTIVA [Concomitant]
     Active Substance: EFAVIRENZ
  30. RANIBIZUMAB. [Concomitant]
     Active Substance: RANIBIZUMAB
  31. OMEPRAZOLE. [Concomitant]
     Active Substance: OMEPRAZOLE
  32. K-TAB [Concomitant]
     Active Substance: POTASSIUM CHLORIDE
  33. POTASSIUM CHLORIDE. [Concomitant]
     Active Substance: POTASSIUM CHLORIDE
  34. AZITHROMYCIN ANHYDROUS. [Concomitant]
     Active Substance: AZITHROMYCIN ANHYDROUS
  35. ADDERALL [Concomitant]
     Active Substance: AMPHETAMINE ASPARTATE\AMPHETAMINE SULFATE\DEXTROAMPHETAMINE SACCHARATE\DEXTROAMPHETAMINE SULFATE
  36. CLINDAMYCIN. [Concomitant]
     Active Substance: CLINDAMYCIN
  37. NORTRIPTYLINE [Concomitant]
     Active Substance: NORTRIPTYLINE
  38. TRUVADA [Suspect]
     Active Substance: EMTRICITABINE\TENOFOVIR DISOPROXIL FUMARATE
     Indication: HIV INFECTION
     Dosage: 1 DOSAGE FORM, QD
     Route: 048
     Dates: start: 20121017, end: 20141013
  39. GENVOYA [Concomitant]
     Active Substance: COBICISTAT\ELVITEGRAVIR\EMTRICITABINE\TENOFOVIR ALAFENAMIDE FUMARATE
  40. METOPROLOL TARTRATE. [Concomitant]
     Active Substance: METOPROLOL TARTRATE
  41. AMLODIPINE [Concomitant]
     Active Substance: AMLODIPINE BESYLATE
  42. SUCRALFATE. [Concomitant]
     Active Substance: SUCRALFATE
  43. PREZISTA [Concomitant]
     Active Substance: DARUNAVIR ETHANOLATE
  44. NORVIR [Concomitant]
     Active Substance: RITONAVIR
  45. PREDNISONE. [Concomitant]
     Active Substance: PREDNISONE
  46. CEFACLOR. [Concomitant]
     Active Substance: CEFACLOR
  47. ISENTRESS [Suspect]
     Active Substance: RALTEGRAVIR POTASSIUM
     Indication: HIV INFECTION
     Dosage: UNK
     Route: 065
  48. HUMAN GROWTH HORMONE, RECOMBINANT [Suspect]
     Active Substance: SOMATROPIN
     Indication: PRODUCT USED FOR UNKNOWN INDICATION
     Dosage: UNK
     Route: 065
  49. MELATONIN [Concomitant]
     Active Substance: MELATONIN
  50. ASPIRIN 81 [Concomitant]
     Active Substance: ASPIRIN
  51. DULOXETINE. [Concomitant]
     Active Substance: DULOXETINE
  52. ALLOPURINOL. [Concomitant]
     Active Substance: ALLOPURINOL
  53. FLUTICASONE PROPIONATE. [Concomitant]
     Active Substance: FLUTICASONE PROPIONATE
  54. QVAR [Concomitant]
     Active Substance: BECLOMETHASONE DIPROPIONATE
  55. ANDROGEL [Concomitant]
     Active Substance: TESTOSTERONE
  56. FLUCONAZOLE. [Concomitant]
     Active Substance: FLUCONAZOLE
  57. OMEGA-3 FISH OIL [Concomitant]
     Active Substance: FISH OIL\OMEGA-3 FATTY ACIDS
  58. CLOTRIMAZOLE. [Concomitant]
     Active Substance: CLOTRIMAZOLE
  59. PANTOPRAZOLE [Concomitant]
     Active Substance: PANTOPRAZOLE
  60. TERAZOSIN [Concomitant]
     Active Substance: TERAZOSIN HYDROCHLORIDE
  61. RAYALDEE [Concomitant]
     Active Substance: CALCIFEDIOL
  62. LIPITOR [Concomitant]
     Active Substance: ATORVASTATIN CALCIUM
  63. AMOXICILLIN AND CLAVULANATE POTASSIUM [Concomitant]
     Active Substance: AMOXICILLIN\CLAVULANATE POTASSIUM
  64. LEVITRA [Concomitant]
     Active Substance: VARDENAFIL HYDROCHLORIDE
  65. ABACAVIR. [Concomitant]
     Active Substance: ABACAVIR
  66. EGRIFTA [Concomitant]
     Active Substance: TESAMORELIN ACETATE
  67. SELENIUM [Concomitant]
     Active Substance: SELENIUM
  68. LONOX [Concomitant]
     Active Substance: ATROPINE SULFATE\DIPHENOXYLATE HYDROCHLORIDE
  69. DEPO-TESTOSTERONE [Concomitant]
     Active Substance: TESTOSTERONE CYPIONATE
  70. GABAPENTIN. [Concomitant]
     Active Substance: GABAPENTIN

REACTIONS (9)
  - Hip arthroplasty [Not Recovered/Not Resolved]
  - Hip arthroplasty [Not Recovered/Not Resolved]
  - Anxiety [Unknown]
  - Emotional distress [Unknown]
  - Anhedonia [Unknown]
  - Chronic kidney disease [Not Recovered/Not Resolved]
  - Economic problem [Unknown]
  - Acute kidney injury [Not Recovered/Not Resolved]
  - Pain [Unknown]

NARRATIVE: CASE EVENT DATE: 20100506
